FAERS Safety Report 5015321-1 (Version None)
Quarter: 2006Q2

REPORT INFORMATION
  Report Type: 
  Country: None (occurrence: None)
  Receive Date: 20060530
  Receipt Date: 20060530
  Transmission Date: 20061013
  Serious: Yes (Hospitalization)
  Sender: FDA-Public Use
  Company Number: None

PATIENT
  Age: 75 Year
  Sex: Male
  Weight: 57.1532 kg

DRUGS (2)
  1. METHOTREXATE [Suspect]
     Indication: RHEUMATOID ARTHRITIS
     Dosage: 20 MG QWK PO
     Route: 048
  2. REMICADE [Suspect]
     Indication: RHEUMATOID ARTHRITIS
     Dosage: 500 MG Q6WKS IV
     Route: 042
     Dates: start: 20020901

REACTIONS (4)
  - DIFFUSE LARGE B-CELL LYMPHOMA STAGE III [None]
  - FALL [None]
  - LUNG NEOPLASM [None]
  - WEIGHT DECREASED [None]
